FAERS Safety Report 19871108 (Version 1)
Quarter: 2021Q3

REPORT INFORMATION
  Report Type: Spontaneous
  Country: US (occurrence: US)
  Receive Date: 20210922
  Receipt Date: 20210922
  Transmission Date: 20211014
  Serious: Yes (Hospitalization, Other)
  Sender: FDA-Public Use
  Company Number: None

PATIENT
  Age: 75 Year
  Sex: Male
  Weight: 83.25 kg

DRUGS (2)
  1. REGEN?COV [Suspect]
     Active Substance: CASIRIVIMAB\IMDEVIMAB
     Indication: COVID-19
     Dates: start: 20210909, end: 20210909
  2. REGEN?COV [Suspect]
     Active Substance: CASIRIVIMAB\IMDEVIMAB
     Indication: CARDIOVASCULAR DISORDER
     Dates: start: 20210909, end: 20210909

REACTIONS (3)
  - Feeling cold [None]
  - Incoherent [None]
  - Infusion related reaction [None]

NARRATIVE: CASE EVENT DATE: 20210909
